FAERS Safety Report 4679259-1 (Version None)
Quarter: 2005Q2

REPORT INFORMATION
  Report Type: 
  Country: None (occurrence: None)
  Receive Date: 20050531
  Receipt Date: 20050526
  Transmission Date: 20051028
  Serious: Yes (Hospitalization)
  Sender: FDA-Public Use
  Company Number: ESWYE520021MAR05

PATIENT
  Age: 55 Year
  Sex: Male

DRUGS (2)
  1. VENLAFAXINE HCL [Suspect]
     Indication: DEPRESSION
     Dosage: 75 MG 1X PER 1 DAY ORAL
     Route: 048
     Dates: start: 20040702, end: 20040714
  2. CLORAZEPATE DIPOTASSIUM [Concomitant]

REACTIONS (8)
  - DIFFICULTY IN WALKING [None]
  - FALL [None]
  - LOSS OF CONSCIOUSNESS [None]
  - MUSCLE RIGIDITY [None]
  - ORTHOSTATIC HYPOTENSION [None]
  - PARKINSONISM [None]
  - UPPER LIMB FRACTURE [None]
  - VESTIBULAR DISORDER [None]
